FAERS Safety Report 5551113-2 (Version None)
Quarter: 2007Q4

REPORT INFORMATION
  Report Type: 
  Country: None (occurrence: None)
  Receive Date: 20071212
  Receipt Date: 20071207
  Transmission Date: 20080405
  Serious: Yes (Death)
  Sender: FDA-Public Use
  Company Number: B0489934A

PATIENT
  Age: 27 Year
  Sex: Female

DRUGS (3)
  1. AUGMENTIN '125' [Suspect]
     Indication: PROPHYLAXIS
     Route: 042
     Dates: start: 20070924
  2. OXYTOCIN [Concomitant]
     Route: 042
     Dates: start: 20070924, end: 20070924
  3. EPIDURAL [Concomitant]
     Indication: PAIN
     Route: 008
     Dates: start: 20070924

REACTIONS (2)
  - ANAPHYLACTIC REACTION [None]
  - STILLBIRTH [None]
